FAERS Safety Report 4390610-2 (Version None)
Quarter: 2004Q2

REPORT INFORMATION
  Report Type: 
  Country: None (occurrence: None)
  Receive Date: 20040630
  Receipt Date: 20040622
  Transmission Date: 20050107
  Serious: No
  Sender: FDA-Public Use
  Company Number: 2004UW06440

PATIENT
  Age: 54 Year
  Sex: Male
  Weight: 83.4619 kg

DRUGS (8)
  1. SEROQUEL [Suspect]
     Indication: PSYCHOTIC DISORDER
     Dosage: 50 MG PO
     Route: 048
     Dates: start: 20031120, end: 20031121
  2. FLEXERIL [Concomitant]
  3. PHENERGAN [Concomitant]
  4. PREDNISONE [Concomitant]
  5. OXYCONTIN [Concomitant]
  6. ATIVAN [Concomitant]
  7. LORTAB [Concomitant]
  8. ULTRAM [Concomitant]

REACTIONS (2)
  - ENURESIS [None]
  - SOMNOLENCE [None]
